FAERS Safety Report 10255482 (Version 1)
Quarter: 2014Q2

REPORT INFORMATION
  Report Type: Spontaneous
  Country: RO (occurrence: RO)
  Receive Date: 20140624
  Receipt Date: 20140624
  Transmission Date: 20141212
  Serious: Yes (Other)
  Sender: FDA-Public Use
  Company Number: RO-MYLANLABS-2014S1014575

PATIENT
  Age: 35 Year
  Sex: Female

DRUGS (1)
  1. ETHINYLESTRADIOL W/LEVONORGESTREL [Suspect]
     Dosage: ETHINYLESTRADIOL 0.030 MG AND LEVONORGESTREL 0.150 MG
     Route: 048

REACTIONS (1)
  - Retinal vein occlusion [Recovered/Resolved]
